FAERS Safety Report 15000535 (Version 1)
Quarter: 2018Q2

REPORT INFORMATION
  Report Type: Spontaneous
  Country: TR (occurrence: TR)
  Receive Date: 20180612
  Receipt Date: 20180612
  Transmission Date: 20180711
  Serious: Yes (Hospitalization, Other)
  Sender: FDA-Public Use
  Company Number: TR-GLAXOSMITHKLINE-TR2018104223

PATIENT
  Age: 22 Year
  Sex: Female

DRUGS (1)
  1. PROPAFENONE. [Suspect]
     Active Substance: PROPAFENONE
     Indication: PRODUCT USED FOR UNKNOWN INDICATION
     Dosage: FORTY FIVE 150 MG TABLETS ; IN TOTAL
     Route: 048

REACTIONS (11)
  - Hypotension [Recovered/Resolved]
  - Generalised tonic-clonic seizure [Recovered/Resolved]
  - Bundle branch block right [Recovered/Resolved]
  - Electrocardiogram QRS complex prolonged [Recovered/Resolved]
  - Sinus bradycardia [Recovered/Resolved]
  - Metabolic acidosis [Recovered/Resolved]
  - Suicide attempt [Unknown]
  - Atrioventricular block first degree [Recovered/Resolved]
  - Toxicity to various agents [Recovered/Resolved]
  - Loss of consciousness [Recovered/Resolved]
  - Intentional overdose [Unknown]
